FAERS Safety Report 5247340-4 (Version None)
Quarter: 2007Q1

REPORT INFORMATION
  Report Type: 
  Country: None (occurrence: None)
  Receive Date: 20070227
  Receipt Date: 20070216
  Transmission Date: 20070707
  Serious: Yes (Hospitalization, Other)
  Sender: FDA-Public Use
  Company Number: GB-JNJFOC-20070201082

PATIENT
  Sex: Male
  Weight: 110 kg

DRUGS (11)
  1. REMICADE [Suspect]
     Indication: RHEUMATOID ARTHRITIS
     Route: 042
  2. SULFASALAZINE [Concomitant]
     Route: 065
  3. AZATHIOPRINE [Concomitant]
     Route: 065
  4. PREDNISOLONE [Concomitant]
     Route: 065
  5. BISOPROLOL FUMARATE [Concomitant]
     Route: 065
  6. CALCICHEW [Concomitant]
     Route: 065
  7. FOSAMAX [Concomitant]
     Route: 065
  8. HYDROXYCHLOROQUINE SULFATE [Concomitant]
     Route: 065
  9. LISINOPRIL [Concomitant]
     Route: 065
  10. PARACETAMOL [Concomitant]
     Route: 065
  11. AMISULPRIDE [Concomitant]
     Route: 065

REACTIONS (3)
  - ARTHRALGIA [None]
  - FATIGUE [None]
  - MALAISE [None]
